FAERS Safety Report 18952934 (Version 1)
Quarter: 2021Q1

REPORT INFORMATION
  Report Type: Spontaneous
  Country: BE (occurrence: BE)
  Receive Date: 20210301
  Receipt Date: 20210301
  Transmission Date: 20210420
  Serious: Yes (Hospitalization, Disabling)
  Sender: FDA-Public Use
  Company Number: BE-NOVOPROD-790109

PATIENT
  Sex: Male

DRUGS (10)
  1. OZEMPIC [Suspect]
     Active Substance: SEMAGLUTIDE
     Indication: TYPE 2 DIABETES MELLITUS
     Dosage: 1 DF, QW
     Route: 058
     Dates: start: 20190917, end: 20210105
  2. ALLOPURINOL EGIS [Concomitant]
     Dosage: TAKEN AT 8 AM
     Route: 065
  3. SPIRONOLACTONE. [Concomitant]
     Active Substance: SPIRONOLACTONE
     Dosage: 3 DF, QW(TAKEN AT 8 AM)
     Route: 065
  4. METFORMINE SANDOZ [Concomitant]
     Active Substance: METFORMIN HYDROCHLORIDE
     Dosage: 3 DF, QD (TAKEN AT 8, 12 AND 18 O^CLOCK)
     Route: 065
  5. TOUJEO [Concomitant]
     Active Substance: INSULIN GLARGINE
     Dosage: 38 IU, QD
     Route: 065
  6. APIDRA SOLOSTAR [Concomitant]
     Active Substance: INSULIN GLULISINE
     Dosage: AT 8 AM, NOON AND 6 PM
     Route: 065
  7. ZANIDIP [Concomitant]
     Active Substance: LERCANIDIPINE HYDROCHLORIDE
     Dosage: 1 DF, QD
     Route: 065
  8. CO?BISOPROLOL [Concomitant]
     Active Substance: BISOPROLOL FUMARATE\HYDROCHLOROTHIAZIDE
     Dosage: 1 DF, QD
     Route: 065
  9. PANTOMED [PANTOPRAZOLE SODIUM SESQUIHYDRATE] [Concomitant]
     Active Substance: PANTOPRAZOLE SODIUM
     Dosage: 20 MG TAKEN AT 6 PM
     Route: 065
  10. DIOVAN [Concomitant]
     Active Substance: VALSARTAN
     Dosage: TAKEN AT 8 AM
     Route: 065

REACTIONS (1)
  - Cholangiocarcinoma [Unknown]

NARRATIVE: CASE EVENT DATE: 20210105
